FAERS Safety Report 4310346-3 (Version None)
Quarter: 2004Q1

REPORT INFORMATION
  Report Type: 
  Country: None (occurrence: None)
  Receive Date: 20040303
  Receipt Date: 20040213
  Transmission Date: 20041129
  Serious: Yes (Other)
  Sender: FDA-Public Use
  Company Number: US-ROCHE-359883

PATIENT
  Age: 50 Year
  Sex: Male
  Weight: 182.5 kg

DRUGS (13)
  1. PEG-INTERFERON ALFA 2A (RO 25-8310) [Suspect]
     Route: 058
     Dates: start: 20010514
  2. RIBAVIRIN [Suspect]
     Route: 048
     Dates: start: 20010514
  3. DDI [Concomitant]
     Route: 048
     Dates: start: 20000315
  4. D4T [Concomitant]
     Route: 048
     Dates: start: 19950615
  5. NELFINAVIR [Concomitant]
     Route: 048
     Dates: start: 19970423
  6. M.V.I. [Concomitant]
     Route: 048
     Dates: start: 19950621
  7. VITAMIN B COMPLEX CAP [Concomitant]
     Route: 048
     Dates: start: 20000815
  8. VITAMIN C [Concomitant]
     Route: 048
     Dates: start: 20001015
  9. VITAMIN E [Concomitant]
     Route: 048
     Dates: start: 20001015
  10. TYLENOL (CAPLET) [Concomitant]
     Dates: start: 20000415
  11. DESONIDE [Concomitant]
     Dates: start: 20000415
  12. LAMIVUDINE [Concomitant]
     Dates: start: 20010914
  13. ABACAVIR [Concomitant]
     Dates: start: 20010914

REACTIONS (7)
  - ADENOCARCINOMA [None]
  - BLOOD LACTIC ACID INCREASED [None]
  - HEPATIC ENZYME INCREASED [None]
  - HEPATOMEGALY [None]
  - LUNG ADENOCARCINOMA [None]
  - PANCREATIC ENZYMES INCREASED [None]
  - PANCREATITIS [None]
